FAERS Safety Report 24291890 (Version 4)
Quarter: 2024Q4

REPORT INFORMATION
  Report Type: Spontaneous
  Country: ZA (occurrence: ZA)
  Receive Date: 20240906
  Receipt Date: 20241119
  Transmission Date: 20250115
  Serious: Yes (Other)
  Sender: CELLTRION
  Company Number: ZA-CELLTRION INC.-2024ZA020984

PATIENT

DRUGS (4)
  1. INFLIXIMAB [Suspect]
     Active Substance: INFLIXIMAB
     Indication: Rheumatoid arthritis
     Dosage: 300 MG AT 0 WEEKS; 2 WEEKS 6 WEEKS; THEN 8 WEEKLY INTERVALS
     Route: 042
     Dates: start: 20240522
  2. INFLIXIMAB [Suspect]
     Active Substance: INFLIXIMAB
     Dosage: 300 MG AT 0 WEEKS; 2 WEEKS 6 WEEKS; THEN 8 WEEKLY INTERVALS
     Route: 042
     Dates: start: 20240605
  3. INFLIXIMAB [Suspect]
     Active Substance: INFLIXIMAB
     Dosage: 300 MG AT 0 WEEKS; 2 WEEKS 6 WEEKS; THEN 8 WEEKLY INTERVALS
     Route: 042
     Dates: start: 20240716
  4. INFLIXIMAB [Suspect]
     Active Substance: INFLIXIMAB
     Dosage: UNK
     Dates: start: 20240910

REACTIONS (16)
  - Rheumatoid arthritis [Unknown]
  - Pelvic pain [Recovering/Resolving]
  - Arthralgia [Recovering/Resolving]
  - Vaginal cyst [Recovering/Resolving]
  - Neck pain [Recovering/Resolving]
  - Chromaturia [Recovering/Resolving]
  - Eye inflammation [Recovering/Resolving]
  - Eye infection [Recovering/Resolving]
  - Pain in jaw [Recovering/Resolving]
  - Dysphagia [Recovering/Resolving]
  - Pain in extremity [Recovering/Resolving]
  - Headache [Recovering/Resolving]
  - Dizziness [Recovering/Resolving]
  - Nausea [Recovering/Resolving]
  - Muscular weakness [Recovering/Resolving]
  - Gait disturbance [Recovering/Resolving]

NARRATIVE: CASE EVENT DATE: 20240829
